FAERS Safety Report 22300180 (Version 2)
Quarter: 2023Q2

REPORT INFORMATION
  Report Type: Spontaneous
  Country: BR (occurrence: BR)
  Receive Date: 20230509
  Receipt Date: 20230525
  Transmission Date: 20230722
  Serious: Yes (Disabling)
  Sender: FDA-Public Use
  Company Number: BR-SA-SAC20230413000616

PATIENT

DRUGS (1)
  1. LARONIDASE [Suspect]
     Active Substance: LARONIDASE
     Indication: Mucopolysaccharidosis I
     Dosage: UNK UNK, QOW
     Route: 042
     Dates: start: 20190522

REACTIONS (3)
  - Speech disorder [Unknown]
  - Inappropriate schedule of product administration [Unknown]
  - Tongue disorder [Unknown]

NARRATIVE: CASE EVENT DATE: 20190522
